FAERS Safety Report 14877691 (Version 1)
Quarter: 2018Q2

REPORT INFORMATION
  Report Type: Report from Study
  Country: FR (occurrence: FR)
  Receive Date: 20180510
  Receipt Date: 20180510
  Transmission Date: 20180711
  Serious: Yes (Death, Hospitalization)
  Sender: FDA-Public Use
  Company Number: FR-INCYTE CORPORATION-2018IN004377

PATIENT

DRUGS (1)
  1. JAKAVI [Suspect]
     Active Substance: RUXOLITINIB
     Indication: MYELOFIBROSIS
     Dosage: UNK
     Route: 065

REACTIONS (5)
  - Radiation proctitis [Fatal]
  - Polycythaemia vera [Fatal]
  - Rectal haemorrhage [Fatal]
  - Myelodysplastic syndrome [Fatal]
  - Fibrosis [Fatal]

NARRATIVE: CASE EVENT DATE: 20140708
